FAERS Safety Report 4345369-1 (Version None)
Quarter: 2004Q2

REPORT INFORMATION
  Report Type: 
  Country: None (occurrence: None)
  Receive Date: 20040420
  Receipt Date: 20040406
  Transmission Date: 20050107
  Serious: Yes (Life-Threatening, Hospitalization, Disabling, Other)
  Sender: FDA-Public Use
  Company Number: US-JNJFOC-20031100561

PATIENT
  Age: 49 Year
  Sex: Female
  Weight: 58.0604 kg

DRUGS (11)
  1. REMICADE [Suspect]
     Indication: RHEUMATOID ARTHRITIS
     Dosage: 200 MG, INTRAVENOUS
     Route: 042
     Dates: start: 20030901, end: 20030901
  2. REMICADE [Suspect]
     Indication: RHEUMATOID ARTHRITIS
     Dosage: 200 MG, INTRAVENOUS
     Route: 042
     Dates: start: 20020410
  3. REMICADE [Suspect]
     Indication: RHEUMATOID ARTHRITIS
     Dosage: 200 MG, INTRAVENOUS
     Route: 042
     Dates: start: 20030416
  4. METHOTREXATE [Suspect]
     Indication: RHEUMATOID ARTHRITIS
     Dosage: 20 MG, 1 IN 1 WEEK, ORAL
     Route: 048
     Dates: start: 19950101, end: 20040101
  5. FOLIC ACID [Concomitant]
  6. RANITIDINE [Concomitant]
  7. FOLIC ACID [Concomitant]
  8. DIFLUNISAL [Concomitant]
  9. FOSAMAX [Concomitant]
  10. TRAZADONE (TRAZODONE) [Concomitant]
  11. PREDNISONE [Concomitant]

REACTIONS (2)
  - RENAL CANCER METASTATIC [None]
  - URINARY BLADDER HAEMORRHAGE [None]
